FAERS Safety Report 24153921 (Version 4)
Quarter: 2025Q1

REPORT INFORMATION
  Report Type: Report from Study
  Country: US (occurrence: US)
  Receive Date: 20240730
  Receipt Date: 20250114
  Transmission Date: 20250409
  Serious: Yes (Other)
  Sender: KYOWA
  Company Number: US-KYOWAKIRIN-2024KK018131

PATIENT

DRUGS (26)
  1. BUROSUMAB [Suspect]
     Active Substance: BUROSUMAB
     Indication: Osteomalacia
     Dosage: 30 MG, 1X/4 WEEKS (1 ML (30 MG) UNDER THE SKIN)
     Route: 058
  2. BUROSUMAB [Suspect]
     Active Substance: BUROSUMAB
     Indication: Hypophosphataemic osteomalacia
     Dosage: 30 MG, 1X/4 WEEKS (UNDER THE SKIN)
     Route: 058
  3. BUROSUMAB [Suspect]
     Active Substance: BUROSUMAB
     Dosage: UNK, 1X/4 WEEKS
     Route: 065
     Dates: start: 20240724
  4. AZITHROMYCIN [Concomitant]
     Active Substance: AZITHROMYCIN
     Indication: Product used for unknown indication
     Route: 065
  5. VITAMIN B12 [Concomitant]
     Active Substance: CYANOCOBALAMIN
     Indication: Product used for unknown indication
     Route: 065
  6. OMEPRAZOLE [Concomitant]
     Active Substance: OMEPRAZOLE
     Indication: Product used for unknown indication
     Route: 065
  7. MAGNESIUM CHLORIDE [Concomitant]
     Active Substance: MAGNESIUM CHLORIDE
     Indication: Product used for unknown indication
     Route: 065
  8. FLUCONAZOLE [Concomitant]
     Active Substance: FLUCONAZOLE
     Indication: Product used for unknown indication
     Route: 065
  9. CALCITRIOL [Concomitant]
     Active Substance: CALCITRIOL
     Indication: Product used for unknown indication
     Route: 065
  10. BENZONATATE [Concomitant]
     Active Substance: BENZONATATE
     Indication: Product used for unknown indication
     Route: 065
  11. BACLOFEN [Concomitant]
     Active Substance: BACLOFEN
     Indication: Product used for unknown indication
     Route: 065
  12. PULMICORT TURBUHALER [Concomitant]
     Active Substance: BUDESONIDE
     Indication: Product used for unknown indication
     Route: 065
  13. ATENOLOL [Concomitant]
     Active Substance: ATENOLOL
     Indication: Product used for unknown indication
     Route: 065
  14. ALBUTEROL SULFATE [Concomitant]
     Active Substance: ALBUTEROL SULFATE
     Indication: Product used for unknown indication
     Route: 065
  15. ALBUTEROL SULFATE [Concomitant]
     Active Substance: ALBUTEROL SULFATE
     Indication: Product used for unknown indication
     Route: 065
  16. ONDANSETRON HYDROCHLORIDE [Concomitant]
     Active Substance: ONDANSETRON HYDROCHLORIDE
     Indication: Product used for unknown indication
     Route: 065
  17. ZOLOFT [Concomitant]
     Active Substance: SERTRALINE HYDROCHLORIDE
     Indication: Product used for unknown indication
     Route: 065
  18. POTASSIUM CHLORIDE [Concomitant]
     Active Substance: POTASSIUM CHLORIDE
     Indication: Product used for unknown indication
     Route: 065
  19. VITAMIN D3 [Concomitant]
     Active Substance: CHOLECALCIFEROL
     Indication: Product used for unknown indication
     Route: 065
  20. CYANOCOBALAMIN [Concomitant]
     Active Substance: CYANOCOBALAMIN
     Indication: Product used for unknown indication
     Route: 065
  21. MIRTAZAPINE [Concomitant]
     Active Substance: MIRTAZAPINE
     Indication: Product used for unknown indication
     Route: 065
  22. TRAZODONE HCL [Concomitant]
     Active Substance: TRAZODONE HYDROCHLORIDE
     Indication: Product used for unknown indication
     Route: 065
  23. XANAX [Concomitant]
     Active Substance: ALPRAZOLAM
     Indication: Product used for unknown indication
     Route: 065
  24. LEVOTHYROXINE SODIUM [Concomitant]
     Active Substance: LEVOTHYROXINE SODIUM
     Indication: Product used for unknown indication
     Route: 065
  25. BISMUTH SUBSALICYLATE [Concomitant]
     Active Substance: BISMUTH SUBSALICYLATE
     Indication: Product used for unknown indication
     Route: 065
  26. PREDNISONE [Concomitant]
     Active Substance: PREDNISONE
     Indication: Product used for unknown indication
     Route: 065

REACTIONS (15)
  - Dyspnoea at rest [Unknown]
  - Wheezing [Unknown]
  - Rhonchi [Unknown]
  - Productive cough [Unknown]
  - Abdominal distension [Unknown]
  - Dysuria [Unknown]
  - Mastication disorder [Unknown]
  - Urinary incontinence [Unknown]
  - Rales [Unknown]
  - Diarrhoea [Unknown]
  - Back pain [Unknown]
  - Asthenia [Unknown]
  - Diarrhoea [Unknown]
  - Oral surgery [Unknown]
  - Oral surgery [Unknown]

NARRATIVE: CASE EVENT DATE: 20250108
